FAERS Safety Report 18286905 (Version 2)
Quarter: 2020Q3

REPORT INFORMATION
  Report Type: Spontaneous
  Country: FR (occurrence: FR)
  Receive Date: 20200921
  Receipt Date: 20200925
  Transmission Date: 20201103
  Serious: Yes (Other)
  Sender: FDA-Public Use
  Company Number: FR-SUN PHARMACEUTICAL INDUSTRIES LTD-2020R1-261353

PATIENT
  Age: 44 Year
  Sex: Female

DRUGS (2)
  1. KETAMINE [Concomitant]
     Active Substance: KETAMINE
     Indication: NEUROPATHY PERIPHERAL
     Dosage: EVERY 3 MONTHS
     Route: 065
  2. GABAPENTIN. [Suspect]
     Active Substance: GABAPENTIN
     Indication: NEUROPATHY PERIPHERAL
     Dosage: 1100 MILLIGRAM, DAILY
     Route: 065

REACTIONS (1)
  - Platelet disorder [Recovered/Resolved]
